FAERS Safety Report 8561314-7 (Version None)
Quarter: 2012Q3

REPORT INFORMATION
  Report Type: 
  Country: None (occurrence: None)
  Receive Date: 20120727
  Receipt Date: 20120727
  Transmission Date: 20120928
  Serious: Yes (Hospitalization)
  Sender: FDA-Public Use
  Company Number: None

PATIENT
  Age: 75 Year
  Sex: Female
  Weight: 50 kg

DRUGS (11)
  1. ASPIRIN [Suspect]
     Indication: MITRAL VALVE REPLACEMENT
     Dosage: 8 1MG DAILY PO CHRONIC
  2. ZYRTEC [Concomitant]
  3. POTASSIUM CHLORIDE [Concomitant]
  4. CHOLECALCIFEROL [Concomitant]
  5. BUMEX [Concomitant]
  6. DIGOXIN [Concomitant]
  7. LOVAZA [Concomitant]
  8. METOPROLOL TARTRATE [Concomitant]
  9. FERROUS SULFATE TAB [Concomitant]
  10. M.V.I. [Concomitant]
  11. COUMADIN [Suspect]
     Indication: ATRIAL FIBRILLATION
     Dosage: 10 MG/7.5 MG PO RECENT CHANGE TO GENERIC

REACTIONS (6)
  - PRODUCT SUBSTITUTION ISSUE [None]
  - OVERDOSE [None]
  - INTERNATIONAL NORMALISED RATIO INCREASED [None]
  - GASTRITIS [None]
  - GASTROINTESTINAL HAEMORRHAGE [None]
  - HAEMORRHAGIC ANAEMIA [None]
